FAERS Safety Report 17292205 (Version 2)
Quarter: 2022Q1

REPORT INFORMATION
  Report Type: Spontaneous
  Country: CH (occurrence: CH)
  Receive Date: 20200121
  Receipt Date: 20220124
  Transmission Date: 20220423
  Serious: No
  Sender: FDA-Public Use
  Company Number: CH-BAYER-2019-224584

PATIENT
  Age: 43 Year
  Sex: Female

DRUGS (1)
  1. MIRENA [Suspect]
     Active Substance: LEVONORGESTREL
     Indication: Heavy menstrual bleeding
     Dosage: 20?G/DAY
     Route: 015
     Dates: start: 2015

REACTIONS (3)
  - Intermenstrual bleeding [Not Recovered/Not Resolved]
  - Ovarian cyst [None]
  - Drug ineffective [None]

NARRATIVE: CASE EVENT DATE: 20190601
